FAERS Safety Report 20425588 (Version 1)
Quarter: 2022Q1

REPORT INFORMATION
  Report Type: Report from Study
  Country: US (occurrence: US)
  Receive Date: 20220204
  Receipt Date: 20220204
  Transmission Date: 20220423
  Serious: No
  Sender: FDA-Public Use
  Company Number: US-EXELIXIS-CABO-21039728

PATIENT
  Age: 54 Year
  Sex: Female

DRUGS (5)
  1. CABOMETYX [Suspect]
     Active Substance: CABOZANTINIB S-MALATE
     Indication: Renal cancer
     Dosage: 60 MG, QD
     Route: 048
     Dates: start: 20210409
  2. CABOMETYX [Suspect]
     Active Substance: CABOZANTINIB S-MALATE
     Dosage: 40 MG, QD
     Route: 048
     Dates: start: 20210513
  3. MARINOL [Concomitant]
     Active Substance: DRONABINOL
  4. MEGESTROL [Concomitant]
     Active Substance: MEGESTROL
  5. ONDANSETRON [Concomitant]
     Active Substance: ONDANSETRON

REACTIONS (9)
  - Myalgia [Not Recovered/Not Resolved]
  - Pain [Unknown]
  - Nausea [Unknown]
  - Diarrhoea [Unknown]
  - Fatigue [Unknown]
  - Stomatitis [Not Recovered/Not Resolved]
  - Taste disorder [Unknown]
  - Abdominal pain upper [Unknown]
  - Vomiting [Unknown]

NARRATIVE: CASE EVENT DATE: 20210401
